FAERS Safety Report 9578315 (Version 1)
Quarter: 2013Q4

REPORT INFORMATION
  Report Type: Spontaneous
  Country: US (occurrence: US)
  Receive Date: 20131001
  Receipt Date: 20131001
  Transmission Date: 20140711
  Serious: No
  Sender: FDA-Public Use
  Company Number: US-AMGEN-USASP2013011937

PATIENT
  Sex: Male
  Weight: 99.77 kg

DRUGS (8)
  1. ENBREL [Suspect]
     Indication: RHEUMATOID ARTHRITIS
     Dosage: 50 MG, UNK
  2. METFORMIN [Concomitant]
     Dosage: 850 MG, UNK
  3. GLIMEPIRIDE [Concomitant]
     Dosage: 4 MG, UNK
  4. PROTONIX [Concomitant]
     Dosage: 20 MG, UNK
  5. FISH OIL [Concomitant]
     Dosage: UNK
  6. LIPITOR [Concomitant]
     Dosage: 40 MG, UNK
  7. FOLIC ACID [Concomitant]
     Dosage: UNK
  8. METHOTREXATE [Concomitant]
     Dosage: 2.5 MG, UNK

REACTIONS (2)
  - Injection site reaction [Unknown]
  - Injection site erythema [Unknown]
